FAERS Safety Report 5035639-6 (Version None)
Quarter: 2006Q2

REPORT INFORMATION
  Report Type: 
  Country: None (occurrence: None)
  Receive Date: 20060627
  Receipt Date: 20060622
  Transmission Date: 20061013
  Serious: Yes (Other)
  Sender: FDA-Public Use
  Company Number: 452020

PATIENT
  Age: 60 Year
  Sex: Male

DRUGS (1)
  1. DILATREND [Suspect]
     Indication: HYPERTENSION
     Route: 065
     Dates: start: 20060315, end: 20060315

REACTIONS (1)
  - HEPATIC ENCEPHALOPATHY [None]
